FAERS Safety Report 4955571-3 (Version None)
Quarter: 2006Q1

REPORT INFORMATION
  Report Type: 
  Country: None (occurrence: None)
  Receive Date: 20060328
  Receipt Date: 20051208
  Transmission Date: 20060701
  Serious: Yes (Death)
  Sender: FDA-Public Use
  Company Number: US-MERCK-0512USA01270

PATIENT
  Age: 70 Year
  Sex: Female
  Weight: 91 kg

DRUGS (8)
  1. VIOXX [Suspect]
     Indication: OSTEOARTHRITIS
     Route: 048
     Dates: start: 20000403, end: 20011101
  2. VIOXX [Suspect]
     Route: 048
     Dates: start: 20000403, end: 20011101
  3. VIOXX [Suspect]
     Route: 048
     Dates: start: 20020302, end: 20020315
  4. VIOXX [Suspect]
     Route: 048
     Dates: start: 20020302, end: 20020315
  5. VIOXX [Suspect]
     Route: 048
     Dates: start: 20020909, end: 20031123
  6. VIOXX [Suspect]
     Route: 048
     Dates: start: 20020909, end: 20031123
  7. AMBIEN [Concomitant]
     Route: 065
  8. PROMETHAZINE [Concomitant]
     Route: 065

REACTIONS (6)
  - ACUTE MYOCARDIAL INFARCTION [None]
  - CATARACT [None]
  - EPIDURAL ANAESTHESIA [None]
  - GASTROOESOPHAGEAL REFLUX DISEASE [None]
  - INJURY [None]
  - OVERDOSE [None]
